FAERS Safety Report 16024126 (Version 1)
Quarter: 2019Q1

REPORT INFORMATION
  Report Type: Spontaneous
  Country: US (occurrence: US)
  Receive Date: 20190301
  Receipt Date: 20190301
  Transmission Date: 20190418
  Serious: No
  Sender: FDA-Public Use
  Company Number: US-IMPAX LABORATORIES, LLC-2018-IPXL-02340

PATIENT
  Age: 51 Year
  Sex: Female
  Weight: 66 kg

DRUGS (3)
  1. EMVERM [Suspect]
     Active Substance: MEBENDAZOLE
     Indication: HELMINTHIC INFECTION
     Dosage: 100 MG, TWICE DAILY (BID)
     Route: 048
     Dates: start: 201805, end: 2018
  2. EMVERM [Suspect]
     Active Substance: MEBENDAZOLE
     Dosage: 100 MG, TWICE DAILY (BID)
     Route: 048
     Dates: start: 201806, end: 20180701
  3. EMVERM [Suspect]
     Active Substance: MEBENDAZOLE
     Dosage: 100 MG, TWICE DAILY (BID)
     Route: 048
     Dates: start: 201806, end: 201806

REACTIONS (1)
  - Drug ineffective [Not Recovered/Not Resolved]
